FAERS Safety Report 8128111-8 (Version None)
Quarter: 2012Q1

REPORT INFORMATION
  Report Type: 
  Country: None (occurrence: None)
  Receive Date: 20120210
  Receipt Date: 20120206
  Transmission Date: 20120608
  Serious: Yes (Other)
  Sender: FDA-Public Use
  Company Number: US-BAYER-2012-013064

PATIENT

DRUGS (2)
  1. ALEVE (CAPLET) [Suspect]
     Indication: PAIN
  2. SKELAXIN [Suspect]

REACTIONS (1)
  - NO ADVERSE EVENT [None]
